FAERS Safety Report 9867225 (Version 1)
Quarter: 2014Q1

REPORT INFORMATION
  Report Type: Spontaneous
  Country: US (occurrence: US)
  Receive Date: 20140204
  Receipt Date: 20140204
  Transmission Date: 20141002
  Serious: Yes (Hospitalization)
  Sender: FDA-Public Use
  Company Number: US-DRREDDYS-USA/USA/14/0037650

PATIENT
  Age: 69 Year
  Sex: Male

DRUGS (6)
  1. TACROLIMUS [Suspect]
     Indication: IMMUNOSUPPRESSION
     Route: 048
  2. TACROLIMUS [Suspect]
     Route: 065
  3. PREDNISONE [Concomitant]
     Indication: IMMUNOSUPPRESSION
     Route: 048
  4. PREDNISONE [Concomitant]
     Route: 065
  5. MYCOPHENOLIC ACID [Concomitant]
     Indication: IMMUNOSUPPRESSION
     Route: 065
  6. METHYLPREDNISOLONE [Concomitant]
     Indication: IMMUNOSUPPRESSION
     Dosage: 500 MG AND THEN 250 MG
     Route: 042

REACTIONS (4)
  - Overdose [Recovering/Resolving]
  - Encephalopathy [Recovering/Resolving]
  - Neuropathy peripheral [Recovering/Resolving]
  - Fall [Recovering/Resolving]
